FAERS Safety Report 4300917-2 (Version None)
Quarter: 2004Q1

REPORT INFORMATION
  Report Type: 
  Country: None (occurrence: None)
  Receive Date: 20040220
  Receipt Date: 20040216
  Transmission Date: 20041129
  Serious: Yes (Disabling)
  Sender: FDA-Public Use
  Company Number: WAES 0402GBR00178

PATIENT
  Age: 28 Year
  Sex: Male

DRUGS (3)
  1. ACETAMINOPHEN [Concomitant]
     Indication: WHIPLASH INJURY
     Route: 048
     Dates: start: 20040109, end: 20040128
  2. IBUPROFEN [Concomitant]
     Indication: WHIPLASH INJURY
     Route: 048
     Dates: start: 20040109, end: 20040128
  3. VIOXX [Suspect]
     Indication: WHIPLASH INJURY
     Route: 048
     Dates: start: 20040128, end: 20040130

REACTIONS (1)
  - DEAFNESS NEUROSENSORY [None]
